FAERS Safety Report 4647266-0 (Version None)
Quarter: 2005Q2

REPORT INFORMATION
  Report Type: 
  Country: None (occurrence: None)
  Receive Date: 20050428
  Receipt Date: 20050422
  Transmission Date: 20051028
  Serious: Yes (Other)
  Sender: FDA-Public Use
  Company Number: 200513498US

PATIENT
  Age: 60 Year
  Sex: Female

DRUGS (6)
  1. LANTUS [Suspect]
     Indication: DIABETES MELLITUS
     Dosage: DOSE UNIT: UNITS
     Route: 058
     Dates: start: 20050201
  2. DIABETA [Suspect]
     Dates: end: 20050421
  3. PRAVACHOL [Concomitant]
  4. CALAN [Concomitant]
  5. HYTRIN [Concomitant]
  6. XANAX [Concomitant]

REACTIONS (5)
  - BLOOD GLUCOSE INCREASED [None]
  - BLOOD URINE PRESENT [None]
  - FATIGUE [None]
  - MICROALBUMINURIA [None]
  - NEPHROLITHIASIS [None]
